FAERS Safety Report 18713134 (Version 1)
Quarter: 2021Q1

REPORT INFORMATION
  Report Type: Other
  Country: GB (occurrence: GB)
  Receive Date: 20210107
  Receipt Date: 20210107
  Transmission Date: 20210419
  Serious: Yes (Other)
  Sender: FDA-Public Use
  Company Number: GB-STRIDES ARCOLAB LIMITED-2020SP016690

PATIENT
  Age: 68 Year
  Sex: Male

DRUGS (4)
  1. LUPRON DEPOT [Concomitant]
     Active Substance: LEUPROLIDE ACETATE
     Indication: HORMONE THERAPY
     Dosage: 11.25 MILLIGRAM
     Route: 058
  2. PREDNISOLONE. [Suspect]
     Active Substance: PREDNISOLONE
     Indication: PROSTATE CANCER
     Dosage: 5 MILLIGRAM, PER DAY
     Route: 048
     Dates: start: 20200707, end: 20201217
  3. ABIRATERONE ACETATE. [Suspect]
     Active Substance: ABIRATERONE ACETATE
     Indication: PROSTATE CANCER
     Dosage: 1000 MILLIGRAM, PER DAY
     Route: 048
     Dates: start: 20200707, end: 20201217
  4. ABIRATERONE ACETATE. [Suspect]
     Active Substance: ABIRATERONE ACETATE
     Dosage: UNK
     Route: 048

REACTIONS (1)
  - Prostatic specific antigen increased [Not Recovered/Not Resolved]

NARRATIVE: CASE EVENT DATE: 202011
